FAERS Safety Report 8231422-9 (Version None)
Quarter: 2012Q1

REPORT INFORMATION
  Report Type: 
  Country: None (occurrence: None)
  Receive Date: 20120323
  Receipt Date: 20120321
  Transmission Date: 20120608
  Serious: No
  Sender: FDA-Public Use
  Company Number: US-TEVA-327734USA

PATIENT
  Sex: Female
  Weight: 87.168 kg

DRUGS (3)
  1. BUDESONIDE [Concomitant]
     Indication: DYSPNOEA
     Dosage: 1 PUFF
     Route: 055
     Dates: start: 20120308
  2. AZITHROMYCIN [Concomitant]
     Indication: RESPIRATORY TRACT INFECTION
     Dosage: 250 MILLIGRAM;
     Route: 048
     Dates: start: 20120308, end: 20120312
  3. PROAIR HFA [Suspect]
     Indication: WHEEZING
     Dosage: 360 MICROGRAM;
     Route: 055
     Dates: start: 20120308

REACTIONS (1)
  - STOMATITIS [None]
